FAERS Safety Report 8608448-6 (Version None)
Quarter: 2012Q3

REPORT INFORMATION
  Report Type: 
  Country: None (occurrence: None)
  Receive Date: 20120821
  Receipt Date: 20120718
  Transmission Date: 20120928
  Serious: Yes (Other)
  Sender: FDA-Public Use
  Company Number: US-JNJFOC-20120709823

PATIENT
  Age: 64 Year
  Sex: Male
  Weight: 71.67 kg

DRUGS (20)
  1. DIGOXIN [Concomitant]
     Indication: ATRIAL FIBRILLATION
     Route: 065
  2. LYRICA [Concomitant]
     Indication: NEUROPATHY PERIPHERAL
     Route: 065
  3. ASPIRIN [Concomitant]
     Indication: ANTICOAGULANT THERAPY
     Route: 065
  4. CYMBALTA [Concomitant]
     Indication: PAIN
     Route: 065
  5. RYTHMOL [Concomitant]
     Indication: ATRIAL FIBRILLATION
     Route: 065
  6. BENADRYL [Suspect]
     Indication: PRODUCT USED FOR UNKNOWN INDICATION
     Route: 065
  7. NUCYNTA [Concomitant]
     Indication: NEUROPATHY PERIPHERAL
     Route: 065
  8. SOMA [Concomitant]
     Indication: MUSCLE RELAXANT THERAPY
     Route: 065
  9. LYRICA [Concomitant]
     Indication: PAIN
     Route: 065
  10. SAVELLA [Concomitant]
     Indication: NEUROPATHY PERIPHERAL
     Route: 065
  11. LIPITOR [Concomitant]
     Indication: BLOOD CHOLESTEROL INCREASED
     Route: 065
  12. SKELAXIN [Concomitant]
     Indication: MUSCLE RELAXANT THERAPY
     Route: 065
  13. SAVELLA [Concomitant]
     Indication: PAIN
     Route: 065
  14. BENADRYL [Suspect]
     Indication: PRURITUS
     Dosage: 1 -2 PILLS 1-2 TIMES EACH NIGHT
     Route: 048
  15. BENADRYL [Suspect]
     Indication: DRUG EFFECT INCREASED
     Dosage: 1 -2 PILLS 1-2 TIMES EACH NIGHT
     Route: 048
  16. FLEXERIL [Concomitant]
     Indication: MUSCLE RELAXANT THERAPY
     Route: 065
  17. CYMBALTA [Concomitant]
     Indication: NEUROPATHY PERIPHERAL
     Route: 065
  18. TOPROL-XL [Concomitant]
     Indication: BLOOD PRESSURE
     Route: 065
  19. BENADRYL [Suspect]
     Indication: SLEEP DISORDER THERAPY
     Dosage: 1 -2 PILLS 1-2 TIMES EACH NIGHT
     Route: 048
  20. NUCYNTA [Concomitant]
     Indication: PAIN
     Route: 065

REACTIONS (3)
  - THERAPEUTIC RESPONSE UNEXPECTED [None]
  - NEUROPATHY PERIPHERAL [None]
  - OFF LABEL USE [None]
